FAERS Safety Report 5120991-3 (Version None)
Quarter: 2006Q4

REPORT INFORMATION
  Report Type: 
  Country: None (occurrence: None)
  Receive Date: 20061002
  Receipt Date: 20060928
  Transmission Date: 20070319
  Serious: Yes (Hospitalization)
  Sender: FDA-Public Use
  Company Number: TH-2006-028562

PATIENT
  Age: 59 Year
  Sex: Male
  Weight: 60 kg

DRUGS (3)
  1. ULTRAVIST 370 [Suspect]
     Indication: ARTERIOGRAM CORONARY
     Dosage: SEE IMAGE
     Dates: start: 20060926, end: 20060926
  2. ULTRAVIST 370 [Suspect]
     Indication: ARTERIOGRAM CORONARY
     Dosage: SEE IMAGE
     Dates: start: 20060926, end: 20060926
  3. ULTRAVIST 370 [Suspect]
     Indication: ARTERIOGRAM CORONARY
     Dosage: SEE IMAGE
     Dates: start: 20060926, end: 20060926

REACTIONS (4)
  - BLOOD PRESSURE SYSTOLIC DECREASED [None]
  - CARDIAC PROCEDURE COMPLICATION [None]
  - DYSPNOEA [None]
  - LOSS OF CONSCIOUSNESS [None]
